FAERS Safety Report 7569933-1 (Version None)
Quarter: 2011Q2

REPORT INFORMATION
  Report Type: 
  Country: None (occurrence: None)
  Receive Date: 20110622
  Receipt Date: 20110622
  Transmission Date: 20111010
  Serious: Yes (Life-Threatening)
  Sender: FDA-Public Use
  Company Number: None

PATIENT
  Age: 75 Year
  Sex: Male
  Weight: 86.9092 kg

DRUGS (2)
  1. ROPINIROLE [Suspect]
     Indication: RESTLESS LEGS SYNDROME
     Dosage: 1 PILL DAY PO
     Route: 048
     Dates: start: 20100722, end: 20110612
  2. ROPINIROLE [Suspect]
     Indication: MUSCLE SPASMS
     Dosage: 1 PILL DAY PO
     Route: 048
     Dates: start: 20100722, end: 20110612

REACTIONS (4)
  - VERTIGO POSITIONAL [None]
  - HEART RATE IRREGULAR [None]
  - DIZZINESS [None]
  - BLOOD PRESSURE DECREASED [None]
